FAERS Safety Report 18874313 (Version 3)
Quarter: 2021Q2

REPORT INFORMATION
  Report Type: Report from Study
  Country: TH (occurrence: TH)
  Receive Date: 20210210
  Receipt Date: 20210412
  Transmission Date: 20210717
  Serious: Yes (Hospitalization)
  Sender: FDA-Public Use
  Company Number: TH-BAYER-2021-048730

PATIENT
  Age: 38 Year
  Sex: Male

DRUGS (1)
  1. STIVARGA [Suspect]
     Active Substance: REGORAFENIB
     Indication: COLORECTAL CANCER
     Dosage: DAILY DOSE 80 MG
     Dates: end: 20210201

REACTIONS (6)
  - Blood sodium decreased [Recovered/Resolved]
  - Intestinal obstruction [Not Recovered/Not Resolved]
  - Renal function test abnormal [Recovering/Resolving]
  - Vomiting [Unknown]
  - Blood potassium decreased [Not Recovered/Not Resolved]
  - Pneumonia [Not Recovered/Not Resolved]
